FAERS Safety Report 24193895 (Version 1)
Quarter: 2024Q3

REPORT INFORMATION
  Report Type: Spontaneous
  Country: IN (occurrence: IN)
  Receive Date: 20240809
  Receipt Date: 20240809
  Transmission Date: 20241016
  Serious: Yes (Death)
  Sender: ROCHE
  Company Number: IN-ROCHE-3519586

PATIENT
  Age: 78 Year
  Sex: Male
  Weight: 46.9 kg

DRUGS (1)
  1. TECENTRIQ [Suspect]
     Active Substance: ATEZOLIZUMAB
     Indication: Prostate cancer
     Route: 041
     Dates: start: 20240212

REACTIONS (3)
  - Off label use [Unknown]
  - Joint stiffness [Unknown]
  - Death [Fatal]

NARRATIVE: CASE EVENT DATE: 20240804
